FAERS Safety Report 13180670 (Version 1)
Quarter: 2017Q1

REPORT INFORMATION
  Report Type: Spontaneous
  Country: DE (occurrence: DE)
  Receive Date: 20170202
  Receipt Date: 20170202
  Transmission Date: 20170428
  Serious: Yes (Hospitalization, Other)
  Sender: FDA-Public Use
  Company Number: DE-VALIDUS PHARMACEUTICALS LLC-DE-2013VAL000597

PATIENT
  Age: 61 Year
  Sex: Male
  Weight: 74 kg

DRUGS (9)
  1. DOXAZOSIN [Suspect]
     Active Substance: DOXAZOSIN\DOXAZOSIN MESYLATE
     Indication: HYPERTENSION
     Dosage: 0.5 MG, UNK
     Route: 048
  2. CICLOSPORIN A [Concomitant]
     Active Substance: CYCLOSPORINE
     Indication: PRODUCT USED FOR UNKNOWN INDICATION
     Dosage: UNK
  3. ALLOPURINOL. [Concomitant]
     Active Substance: ALLOPURINOL
     Indication: PRODUCT USED FOR UNKNOWN INDICATION
     Dosage: UNK
  4. PREDNISOLONE. [Concomitant]
     Active Substance: PREDNISOLONE
     Indication: PRODUCT USED FOR UNKNOWN INDICATION
     Dosage: UNK
  5. METOPROLOL TARTRATE. [Suspect]
     Active Substance: METOPROLOL TARTRATE
     Indication: PRODUCT USED FOR UNKNOWN INDICATION
     Dosage: 95 MG, UNK
     Route: 048
  6. NITRENDIPINE [Concomitant]
     Active Substance: NITRENDIPINE
     Indication: PRODUCT USED FOR UNKNOWN INDICATION
     Dosage: UNK
  7. FLUVASTATIN [Concomitant]
     Active Substance: FLUVASTATIN SODIUM
     Indication: PRODUCT USED FOR UNKNOWN INDICATION
     Dosage: UNK
  8. TELMISARTAN. [Suspect]
     Active Substance: TELMISARTAN
     Indication: HYPERTENSION
     Dosage: UNK, 80 MH
     Route: 048
  9. EVEROLIMUS [Concomitant]
     Active Substance: EVEROLIMUS
     Indication: PRODUCT USED FOR UNKNOWN INDICATION
     Dosage: UNK

REACTIONS (2)
  - Vertigo [Recovered/Resolved]
  - Nausea [Recovered/Resolved]

NARRATIVE: CASE EVENT DATE: 20131101
